FAERS Safety Report 4396096-6 (Version None)
Quarter: 2004Q2

REPORT INFORMATION
  Report Type: 
  Country: None (occurrence: None)
  Receive Date: 20040621
  Receipt Date: 20031121
  Transmission Date: 20050107
  Serious: Yes (Death)
  Sender: FDA-Public Use
  Company Number: USA-2003-0011030

PATIENT
  Age: 34 Year
  Sex: Male

DRUGS (5)
  1. OXYCODONE HCL [Suspect]
  2. HYDROCODONE BITARTRATE [Suspect]
  3. COCAINE (COCAINE) [Suspect]
  4. ETHANOL (ETHANOL) [Suspect]
  5. CANNABIS (CANNABIS) [Suspect]

REACTIONS (2)
  - ACCIDENTAL OVERDOSE [None]
  - MULTIPLE DRUG OVERDOSE [None]
